FAERS Safety Report 8153068-3 (Version None)
Quarter: 2012Q1

REPORT INFORMATION
  Report Type: 
  Country: None (occurrence: None)
  Receive Date: 20120221
  Receipt Date: 20120217
  Transmission Date: 20120608
  Serious: Yes (Death)
  Sender: FDA-Public Use
  Company Number: US-PFIZER INC-2012023494

PATIENT
  Sex: Female
  Weight: 106.6 kg

DRUGS (5)
  1. WELLBUTRIN [Suspect]
     Dosage: UNK
     Route: 048
  2. CYMBALTA [Concomitant]
     Dosage: UNK
  3. ZYVOX [Suspect]
     Indication: STAPHYLOCOCCAL INFECTION
     Dosage: UNK
  4. WELLBUTRIN [Suspect]
     Indication: SEROTONIN SYNDROME
     Dosage: 75 MG, 2X/DAY
     Route: 048
  5. ZYVOX [Suspect]
     Indication: PNEUMONIA
     Dosage: 600 MG, 2X/DAY
     Dates: start: 20110718

REACTIONS (1)
  - DEATH [None]
